FAERS Safety Report 7829116 (Version 2)
Quarter: 2013Q2

REPORT INFORMATION
  Report Type: Report from Study
  Country: MX (occurrence: MX)
  Receive Date: 20110225
  Receipt Date: 20130523
  Transmission Date: 20140414
  Serious: Yes (Hospitalization, Other)
  Sender: FDA-Public Use
  Company Number: PHHY2011MX12848

PATIENT
  Age: 82 Year
  Sex: Female

DRUGS (3)
  1. CO-DIOVAN [Suspect]
     Indication: HYPERTENSION
     Dosage: 1 DF (160/25MG), DAILY
     Route: 048
     Dates: start: 20050310
  2. FUROSEMIDE [Concomitant]
     Dosage: UNK UKN, UNK
  3. ACETYLSALICYLIC ACID [Concomitant]
     Dosage: UNK UKN, UNK

REACTIONS (12)
  - Myocardial infarction [Recovered/Resolved]
  - Pain in extremity [Recovered/Resolved]
  - Hypoaesthesia [Recovered/Resolved]
  - Speech disorder [Recovered/Resolved]
  - Crying [Recovered/Resolved]
  - Apathy [Recovering/Resolving]
  - Asthenia [Recovering/Resolving]
  - Headache [Recovering/Resolving]
  - Dizziness [Recovering/Resolving]
  - Dyspepsia [Recovered/Resolved]
  - Constipation [Recovered/Resolved]
  - Gastritis [Unknown]
